FAERS Safety Report 21109716 (Version 1)
Quarter: 2022Q3

REPORT INFORMATION
  Report Type: Report from Study
  Country: JP (occurrence: JP)
  Receive Date: 20220721
  Receipt Date: 20220721
  Transmission Date: 20221026
  Serious: Yes (Other)
  Sender: FDA-Public Use
  Company Number: JP-JNJFOC-20220738619

PATIENT
  Age: 65 Year
  Sex: Male

DRUGS (40)
  1. SIMPONI [Suspect]
     Active Substance: GOLIMUMAB
     Indication: Rheumatoid arthritis
     Route: 058
     Dates: start: 20210915
  2. SIMPONI [Suspect]
     Active Substance: GOLIMUMAB
     Route: 058
     Dates: start: 20211013
  3. VONOPRAZAN FUMARATE [Concomitant]
     Active Substance: VONOPRAZAN FUMARATE
     Dosage: AFTER BREAKFAST
     Route: 048
  4. VONOPRAZAN FUMARATE [Concomitant]
     Active Substance: VONOPRAZAN FUMARATE
     Dosage: AFTER BREAKFAST
     Route: 048
     Dates: start: 20210331
  5. PREDNISOLONE [Concomitant]
     Active Substance: PREDNISOLONE
     Dosage: AFTER BREAKFAST, AFTER DINNER
     Route: 048
  6. PREDNISOLONE [Concomitant]
     Active Substance: PREDNISOLONE
     Dosage: AFTER BREAKFAST, AFTER DINNER
     Route: 048
     Dates: start: 20210331
  7. PREDNISOLONE [Concomitant]
     Active Substance: PREDNISOLONE
     Dosage: AFTER BREAKFAST
     Route: 048
     Dates: start: 20210428
  8. PREDNISOLONE [Concomitant]
     Active Substance: PREDNISOLONE
     Dosage: AFTER DINNER
     Route: 048
     Dates: start: 20210428
  9. PREDNISOLONE [Concomitant]
     Active Substance: PREDNISOLONE
     Dosage: AFTER BREAKFAST
     Route: 048
     Dates: start: 20210519
  10. PREDNISOLONE [Concomitant]
     Active Substance: PREDNISOLONE
     Dosage: AFTER BREAKFAST, AFTER DINNER
     Route: 048
     Dates: start: 20210616
  11. PREDNISOLONE [Concomitant]
     Active Substance: PREDNISOLONE
     Dosage: AFTER BREAKFAST
     Route: 048
     Dates: start: 20210728
  12. PREDNISOLONE [Concomitant]
     Active Substance: PREDNISOLONE
     Dosage: AFTER DINNER
     Route: 048
     Dates: start: 20210728
  13. PREDNISOLONE [Concomitant]
     Active Substance: PREDNISOLONE
     Dosage: AFTER BREAKFAST, AFTER DINNER
     Route: 048
     Dates: start: 20210818
  14. PREDNISOLONE [Concomitant]
     Active Substance: PREDNISOLONE
     Dosage: AFTER BREAKFAST
     Route: 048
     Dates: start: 20211215
  15. PREDNISOLONE [Concomitant]
     Active Substance: PREDNISOLONE
     Dosage: AFTER DINNER
     Route: 048
     Dates: start: 20211215
  16. PREDNISOLONE [Concomitant]
     Active Substance: PREDNISOLONE
     Route: 048
     Dates: start: 20220629
  17. ATOVAQUONE [Concomitant]
     Active Substance: ATOVAQUONE
     Dosage: AFTER BREAKFAST
     Route: 048
     Dates: start: 20210728
  18. METHOTREXATE [Concomitant]
     Active Substance: METHOTREXATE
     Dosage: AFTER BREAKFAST, AFTER DINNER
     Route: 048
     Dates: start: 20210818
  19. FOLIC ACID [Concomitant]
     Active Substance: FOLIC ACID
     Dosage: AFTER BREAKFAST, 48 HOURS AFTER TAKING RHEUMATREX
     Route: 048
     Dates: start: 20210414
  20. FOLIC ACID [Concomitant]
     Active Substance: FOLIC ACID
     Dosage: AFTER BREAKFAST
     Route: 048
     Dates: start: 20210818
  21. FOLIC ACID [Concomitant]
     Active Substance: FOLIC ACID
     Dosage: AFTER BREAKFAST, ON SATURDAY
     Route: 048
     Dates: start: 20220629
  22. LOXOPROFEN SODIUM DIHYDRATE [Concomitant]
     Active Substance: LOXOPROFEN SODIUM DIHYDRATE
     Route: 003
     Dates: start: 20210519
  23. LOXOPROFEN SODIUM DIHYDRATE [Concomitant]
     Active Substance: LOXOPROFEN SODIUM DIHYDRATE
     Dosage: LOW BACK
     Route: 003
     Dates: start: 20210616
  24. FELBINAC [Concomitant]
     Active Substance: FELBINAC
     Dosage: DOSE UNKNOWN, PAINFUL AREA
     Route: 061
     Dates: start: 20210818
  25. FELBINAC [Concomitant]
     Active Substance: FELBINAC
     Dosage: DOSE UNKNOWN, PAINFUL AREA, LEG
     Route: 061
     Dates: start: 20210915
  26. BREO ELLIPTA [Concomitant]
     Active Substance: FLUTICASONE FUROATE\VILANTEROL TRIFENATATE
     Dosage: 1 INHALATION AT A TIME
     Route: 055
     Dates: start: 20211201
  27. AUGMENTIN [Concomitant]
     Active Substance: AMOXICILLIN\CLAVULANATE POTASSIUM
     Dosage: AFTER EACH MEAL
     Route: 048
     Dates: start: 20211201
  28. AUGMENTIN [Concomitant]
     Active Substance: AMOXICILLIN\CLAVULANATE POTASSIUM
     Dosage: AFTER EACH MEAL
     Route: 048
     Dates: start: 20220706
  29. AMOXICILLIN TRIHYDRATE [Concomitant]
     Active Substance: AMOXICILLIN
     Dosage: AFTER EACH MEAL
     Route: 048
     Dates: start: 20211201
  30. AMOXICILLIN TRIHYDRATE [Concomitant]
     Active Substance: AMOXICILLIN
     Dosage: AFTER EACH MEAL
     Route: 048
     Dates: start: 20220706
  31. AZITHROMYCIN DIHYDRATE [Concomitant]
     Active Substance: AZITHROMYCIN DIHYDRATE
     Dosage: AFTER BREAKFAST
     Route: 048
     Dates: start: 20211201
  32. MIYA-BM [Concomitant]
     Active Substance: CLOSTRIDIUM BUTYRICUM SPORES STRAIN M-55
     Dosage: AFTER EACH MEAL
     Route: 048
     Dates: start: 20211208
  33. SULFAMETHOXAZOLE\TRIMETHOPRIM [Concomitant]
     Active Substance: SULFAMETHOXAZOLE\TRIMETHOPRIM
     Dosage: AFTER BREAKFAST, MONDAY/WEDNESDAY/FRIDAY
     Route: 048
     Dates: start: 20210414
  34. SULFAMETHOXAZOLE\TRIMETHOPRIM [Concomitant]
     Active Substance: SULFAMETHOXAZOLE\TRIMETHOPRIM
     Dosage: AFTER BREAKFAST
     Route: 048
     Dates: start: 20220629
  35. RHEUMATREX [Concomitant]
     Active Substance: METHOTREXATE SODIUM
     Dosage: AFTER BREAKFAST, AFTER DINNER
     Route: 048
     Dates: start: 20210414
  36. RHEUMATREX [Concomitant]
     Active Substance: METHOTREXATE SODIUM
     Dosage: AFTER BREAKFAST, AFTER DINNER
     Route: 048
     Dates: start: 20210428
  37. RHEUMATREX [Concomitant]
     Active Substance: METHOTREXATE SODIUM
     Dosage: AFTER BREAKFAST, AFTER DINNER
     Route: 048
     Dates: start: 20210519
  38. RHEUMATREX [Concomitant]
     Active Substance: METHOTREXATE SODIUM
     Dosage: AFTER BREAKFAST, AFTER DINNER, ON THURSDAY
     Route: 048
     Dates: start: 20220629
  39. DICLOFENAC SODIUM [Concomitant]
     Active Substance: DICLOFENAC SODIUM
     Dosage: HAND
     Route: 061
     Dates: start: 20220629
  40. AZITHROMYCIN DIHYDRATE [Concomitant]
     Active Substance: AZITHROMYCIN DIHYDRATE
     Dosage: AFTER BREAKFAST
     Route: 048
     Dates: start: 20220706

REACTIONS (1)
  - Pneumonia [Unknown]

NARRATIVE: CASE EVENT DATE: 20211201
